FAERS Safety Report 16659336 (Version 1)
Quarter: 2019Q3

REPORT INFORMATION
  Report Type: Not Available
  Country: None (occurrence: CN)
  Receive Date: 20190802
  Receipt Date: 20190802
  Transmission Date: 20191004
  Serious: Yes (Other)
  Sender: FDA-Public Use
  Company Number: CN-JIANGSU HENGRUI MEDICINE CO., LTD.-2072666

PATIENT
  Age: 53 Year
  Sex: Female
  Weight: 53 kg

DRUGS (2)
  1. ETORICOXIB TABLETS [Concomitant]
     Route: 048
     Dates: start: 20190622, end: 20190623
  2. GABAPENTIN. [Suspect]
     Active Substance: GABAPENTIN
     Indication: MYOFASCITIS
     Route: 048
     Dates: start: 20190622, end: 20190623

REACTIONS (2)
  - Generalised oedema [Recovered/Resolved]
  - Anuria [Recovered/Resolved]

NARRATIVE: CASE EVENT DATE: 20190623
